FAERS Safety Report 4819709-0 (Version None)
Quarter: 2005Q4

REPORT INFORMATION
  Report Type: 
  Country: None (occurrence: None)
  Receive Date: 20051102
  Receipt Date: 20051102
  Transmission Date: 20060501
  Serious: Yes (Hospitalization)
  Sender: FDA-Public Use
  Company Number: None

PATIENT
  Age: 75 Year
  Sex: Female
  Weight: 58.0604 kg

DRUGS (1)
  1. GEODON [Suspect]
     Indication: PSYCHOTIC DISORDER
     Dosage: 40MG PO BID PC AND @ 1000 PM WITH FOOD
     Route: 048
     Dates: start: 20051005, end: 20051028

REACTIONS (1)
  - RASH ERYTHEMATOUS [None]
